FAERS Safety Report 14122497 (Version 1)
Quarter: 2017Q4

REPORT INFORMATION
  Report Type: Spontaneous
  Country: US (occurrence: US)
  Receive Date: 20171024
  Receipt Date: 20171024
  Transmission Date: 20180321
  Serious: No
  Sender: FDA-Public Use
  Company Number: US-TEIKOKU PHARMA USA-TPU2017-00666

PATIENT
  Sex: Female
  Weight: 49.94 kg

DRUGS (1)
  1. LIDOCAINE PATCH [Suspect]
     Active Substance: LIDOCAINE
     Indication: BACK PAIN
     Route: 061
     Dates: start: 2014, end: 2014

REACTIONS (2)
  - Weight decreased [Not Recovered/Not Resolved]
  - Body height decreased [Not Recovered/Not Resolved]
